FAERS Safety Report 13011939 (Version 1)
Quarter: 2016Q4

REPORT INFORMATION
  Report Type: Spontaneous
  Country: US (occurrence: US)
  Receive Date: 20161209
  Receipt Date: 20161209
  Transmission Date: 20170207
  Serious: Yes (Other)
  Sender: FDA-Public Use
  Company Number: US-ROCHE-1864510

PATIENT
  Sex: Female

DRUGS (3)
  1. RITUXAN [Suspect]
     Active Substance: RITUXIMAB
     Indication: B-CELL LYMPHOMA
     Dosage: ONGOING: NO
     Route: 042
  2. GAZYVA [Suspect]
     Active Substance: OBINUTUZUMAB
     Indication: B-CELL LYMPHOMA
     Dosage: ONGOING: YES
     Route: 065
  3. BENDAMUSTINE [Concomitant]
     Active Substance: BENDAMUSTINE
     Indication: B-CELL LYMPHOMA
     Dosage: ONGOING: UNKNOWN
     Route: 065

REACTIONS (6)
  - Neutropenia [Unknown]
  - Exfoliative rash [Unknown]
  - Eye pruritus [Unknown]
  - Fatigue [Unknown]
  - Mouth swelling [Unknown]
  - Rash [Unknown]
